FAERS Safety Report 4509218-0 (Version None)
Quarter: 2004Q4

REPORT INFORMATION
  Report Type: 
  Country: None (occurrence: None)
  Receive Date: 20041025
  Receipt Date: 20040415
  Transmission Date: 20050328
  Serious: Yes (Disabling, Other)
  Sender: FDA-Public Use
  Company Number: NSADSS2001028430

PATIENT
  Age: 61 Year
  Sex: Female
  Weight: 62.5964 kg

DRUGS (14)
  1. REMICADE [Suspect]
     Indication: CROHN'S DISEASE
     Dosage: ,1 IN 1, INTRAVENOUS DRIP
     Route: 041
     Dates: start: 19980401, end: 19980401
  2. ENTOCORT (BUDESONIDE) [Concomitant]
  3. PEPTOBISMAL (BISMUTH SUBSALICYLATE) [Concomitant]
  4. BIAXIN [Concomitant]
  5. PRILOSEC [Concomitant]
  6. ESTRADERM [Concomitant]
  7. DRIOXORAL (DRIXORAL) [Concomitant]
  8. B 12 (CYANOCOBALAMIN) INJECTION [Concomitant]
  9. MULTIVITAMIN (MULTIVITAMIN) [Concomitant]
  10. EXCEDRIN (MIGRAINE) [Concomitant]
  11. TYLENOL [Concomitant]
  12. CELEBREX [Concomitant]
  13. VITAMIN E [Concomitant]
  14. CALCIUM PLUS D (CALCIUM) [Concomitant]

REACTIONS (4)
  - FACE OEDEMA [None]
  - INFUSION RELATED REACTION [None]
  - SYSTEMIC LUPUS ERYTHEMATOSUS [None]
  - URTICARIA [None]
